FAERS Safety Report 6287455-5 (Version None)
Quarter: 2009Q3

REPORT INFORMATION
  Report Type: 
  Country: None (occurrence: None)
  Receive Date: 20090727
  Receipt Date: 20090722
  Transmission Date: 20100115
  Serious: Yes (Hospitalization)
  Sender: FDA-Public Use
  Company Number: GXKR2009DE08346

PATIENT
  Age: 25 Year
  Sex: Female
  Weight: 51 kg

DRUGS (7)
  1. CLARITHROMYCIN [Suspect]
     Indication: RESPIRATORY TRACT INFECTION
     Dosage: 250 MG, BID, ORAL
     Route: 048
     Dates: start: 20090119, end: 20090125
  2. METRONIDAZOLE [Suspect]
     Indication: CLOSTRIDIUM COLITIS
     Dosage: 400 MG, TID, ORAL
     Route: 048
     Dates: start: 20090401, end: 20090410
  3. VALETTE (DIENOGEST, ETHINYLESTRADIOL) [Concomitant]
  4. SALOFALK ^AVENTIS^ (MESALAZINE) [Concomitant]
  5. PREDNISOLONE [Concomitant]
  6. PANTOPRAZOLE SODIUM [Concomitant]
  7. FERRO-SANOL DUODENAL (FERROUS SULFATE) [Concomitant]

REACTIONS (2)
  - GASTROENTERITIS CLOSTRIDIAL [None]
  - PSEUDOMEMBRANOUS COLITIS [None]
